FAERS Safety Report 6506173-9 (Version None)
Quarter: 2009Q4

REPORT INFORMATION
  Report Type: 
  Country: None (occurrence: None)
  Receive Date: 20091218
  Receipt Date: 20091216
  Transmission Date: 20100525
  Serious: Yes (Hospitalization)
  Sender: FDA-Public Use
  Company Number: US-ELI_LILLY_AND_COMPANY-US200912004101

PATIENT
  Sex: Female

DRUGS (3)
  1. HUMALOG MIX 75/25 [Suspect]
     Indication: DIABETES MELLITUS
     Dosage: 12 U, EACH MORNING
     Dates: start: 20080101
  2. HUMALOG MIX 75/25 [Suspect]
     Dosage: 6 U, EACH EVENING
     Dates: start: 20080101
  3. GLIPIZIDE [Concomitant]
     Dosage: UNK, DAILY (1/D)

REACTIONS (1)
  - THROMBOSIS [None]
